FAERS Safety Report 15451358 (Version 1)
Quarter: 2018Q3

REPORT INFORMATION
  Report Type: Spontaneous
  Country: US (occurrence: US)
  Receive Date: 20180927
  Receipt Date: 20180927
  Transmission Date: 20181010
  Serious: No
  Sender: FDA-Public Use
  Company Number: None

PATIENT
  Age: 60 Year
  Sex: Male
  Weight: 48.99 kg

DRUGS (4)
  1. OTREXUP [Suspect]
     Active Substance: METHOTREXATE
     Indication: RHEUMATOID ARTHRITIS
     Dosage: ?          OTHER DOSE:12.5/.4 MG/ML;OTHER FREQUENCY:ONCE WEEKLY;?
     Route: 058
     Dates: start: 201704
  2. FORTEO [Suspect]
     Active Substance: TERIPARATIDE
     Indication: SENILE OSTEOPOROSIS
     Route: 058
     Dates: start: 201802
  3. FORTEO [Suspect]
     Active Substance: TERIPARATIDE
     Indication: RHEUMATOID ARTHRITIS
     Route: 058
     Dates: start: 201802
  4. OTREXUP [Suspect]
     Active Substance: METHOTREXATE
     Indication: SENILE OSTEOPOROSIS
     Dosage: ?          OTHER DOSE:12.5/.4 MG/ML;OTHER FREQUENCY:ONCE WEEKLY;?
     Route: 058
     Dates: start: 201704

REACTIONS (3)
  - Back pain [None]
  - Arthralgia [None]
  - Pain in extremity [None]
